FAERS Safety Report 13308810 (Version 1)
Quarter: 2017Q1

REPORT INFORMATION
  Report Type: Spontaneous
  Country: US (occurrence: US)
  Receive Date: 20170308
  Receipt Date: 20170308
  Transmission Date: 20170428
  Serious: Yes (Death)
  Sender: FDA-Public Use
  Company Number: None

PATIENT
  Age: 5 Year
  Sex: Female
  Weight: 22 kg

DRUGS (6)
  1. DEPAKOTE [Concomitant]
     Active Substance: DIVALPROEX SODIUM
  2. FERROUS SULFATE. [Concomitant]
     Active Substance: FERROUS SULFATE
  3. LEVETIRACETAM. [Suspect]
     Active Substance: LEVETIRACETAM
     Indication: EPILEPSY
     Route: 048
     Dates: start: 20150218, end: 20150305
  4. LEVOCARNITINE. [Concomitant]
     Active Substance: LEVOCARNITINE
  5. MACRODANTIN [Concomitant]
     Active Substance: NITROFURANTOIN
  6. LEVETIRACETAM. [Suspect]
     Active Substance: LEVETIRACETAM
     Indication: EPILEPSY
     Route: 048
     Dates: start: 20150306, end: 20150310

REACTIONS (7)
  - Herpes virus infection [None]
  - Sepsis [None]
  - Hypovolaemia [None]
  - Herpes simplex [None]
  - Vomiting [None]
  - Multiple organ dysfunction syndrome [None]
  - Bone marrow failure [None]

NARRATIVE: CASE EVENT DATE: 20150303
